FAERS Safety Report 6771888-4 (Version None)
Quarter: 2010Q2

REPORT INFORMATION
  Report Type: 
  Country: None (occurrence: None)
  Receive Date: 20100616
  Receipt Date: 20100331
  Transmission Date: 20101027
  Serious: No
  Sender: FDA-Public Use
  Company Number: US-ASTRAZENECA-2010SE14226

PATIENT
  Age: 78 Year
  Sex: Female
  Weight: 63.5 kg

DRUGS (12)
  1. ENTOCORT EC [Suspect]
     Indication: CROHN'S DISEASE
     Route: 048
     Dates: start: 20100301
  2. NEXIUM [Suspect]
     Route: 048
  3. DIGOXIN [Concomitant]
  4. ASPIRIN [Concomitant]
  5. VIT B12 [Concomitant]
  6. CALCIUM CARBONATE [Concomitant]
  7. DILTIAZEM [Concomitant]
  8. FOLIC ACID [Concomitant]
  9. FUROSEMIDE [Concomitant]
  10. COUMADIN [Concomitant]
  11. POTASSIUM [Concomitant]
  12. MAGNESIUM [Concomitant]

REACTIONS (4)
  - COUGH [None]
  - INAPPROPRIATE SCHEDULE OF DRUG ADMINISTRATION [None]
  - RHINORRHOEA [None]
  - SNEEZING [None]
